FAERS Safety Report 12236472 (Version 2)
Quarter: 2016Q2

REPORT INFORMATION
  Report Type: Spontaneous
  Country: US (occurrence: IT)
  Receive Date: 20160404
  Receipt Date: 20160411
  Transmission Date: 20160815
  Serious: Yes (Death, Hospitalization)
  Sender: FDA-Public Use
  Company Number: PHHY2016US040784

PATIENT
  Age: 41 Year
  Sex: Male

DRUGS (2)
  1. PHENYLBUTAZONE [Suspect]
     Active Substance: PHENYLBUTAZONE
     Indication: RHEUMATOID ARTHRITIS
     Dosage: 0.20 G, TID
     Route: 065
  2. PHENYLBUTAZONE [Suspect]
     Active Substance: PHENYLBUTAZONE
     Dosage: 8.4 G, UNK
     Route: 065

REACTIONS (25)
  - Skin lesion [Fatal]
  - Erythema multiforme [Fatal]
  - Nikolsky^s sign [Fatal]
  - Skin fissures [Fatal]
  - Eye pain [Fatal]
  - Dry gangrene [Fatal]
  - Disease susceptibility [Fatal]
  - Blister [Fatal]
  - Rash [Fatal]
  - Pyrexia [Fatal]
  - Purpura [Fatal]
  - Pain of skin [Fatal]
  - Gingival bleeding [Fatal]
  - Scab [Fatal]
  - Oral mucosa erosion [Fatal]
  - General physical health deterioration [Fatal]
  - Stevens-Johnson syndrome [Fatal]
  - Rash erythematous [Fatal]
  - Skin burning sensation [Fatal]
  - Melaena [Fatal]
  - Eyelid disorder [Fatal]
  - Skin graft detachment [Fatal]
  - Haematuria [Fatal]
  - Skin degenerative disorder [Fatal]
  - Chills [Fatal]
